FAERS Safety Report 6898311-3 (Version None)
Quarter: 2010Q3

REPORT INFORMATION
  Report Type: 
  Country: None (occurrence: None)
  Receive Date: 20100802
  Receipt Date: 20071016
  Transmission Date: 20110219
  Serious: Yes (Hospitalization, Other)
  Sender: FDA-Public Use
  Company Number: US-PFIZER INC-2007086593

PATIENT
  Sex: Female

DRUGS (3)
  1. LYRICA [Suspect]
     Indication: NEUROPATHY PERIPHERAL
  2. METHADONE HCL [Concomitant]
  3. DEXAMETHASONE [Concomitant]

REACTIONS (2)
  - DYSPHAGIA [None]
  - DYSPNOEA [None]
